FAERS Safety Report 20967614 (Version 1)
Quarter: 2022Q2

REPORT INFORMATION
  Report Type: Spontaneous
  Country: US (occurrence: US)
  Receive Date: 20220616
  Receipt Date: 20220616
  Transmission Date: 20220721
  Serious: Yes (Life-Threatening, Hospitalization, Other)
  Sender: FDA-Public Use
  Company Number: US-PFIZER INC-202200828341

PATIENT
  Age: 33 Year
  Sex: Female
  Weight: 61.23 kg

DRUGS (3)
  1. XANAX [Suspect]
     Active Substance: ALPRAZOLAM
     Indication: Anxiety
     Dosage: 6 MG, UNK (^YEARS AGO^)
  2. XANAX [Suspect]
     Active Substance: ALPRAZOLAM
     Dosage: UNK (DOSE HAS BEEN SLOWLY DECREASED)
  3. XANAX [Suspect]
     Active Substance: ALPRAZOLAM
     Dosage: 1 MG, 3X/DAY

REACTIONS (14)
  - Meningitis [Unknown]
  - Accident [Unknown]
  - Fall [Unknown]
  - Drug dependence [Unknown]
  - Loss of consciousness [Unknown]
  - Abortion spontaneous [Unknown]
  - Road traffic accident [Unknown]
  - Asphyxia [Unknown]
  - Concussion [Unknown]
  - Abdominal pain [Unknown]
  - Amnesia [Unknown]
  - Panic reaction [Unknown]
  - Drug ineffective [Unknown]
  - Prescribed overdose [Unknown]

NARRATIVE: CASE EVENT DATE: 20080101
